FAERS Safety Report 18198021 (Version 3)
Quarter: 2023Q2

REPORT INFORMATION
  Report Type: Spontaneous
  Country: US (occurrence: US)
  Receive Date: 20200826
  Receipt Date: 20230425
  Transmission Date: 20230722
  Serious: Yes (Other)
  Sender: FDA-Public Use
  Company Number: US-GILEAD-2020-0491862

PATIENT
  Age: 44 Year
  Sex: Male
  Weight: 81.633 kg

DRUGS (47)
  1. VIREAD [Suspect]
     Active Substance: TENOFOVIR DISOPROXIL FUMARATE
     Indication: HIV infection
     Dosage: UNK
     Route: 048
     Dates: start: 200403, end: 201801
  2. VIREAD [Suspect]
     Active Substance: TENOFOVIR DISOPROXIL FUMARATE
     Dosage: UNK
     Route: 048
     Dates: start: 201703, end: 201704
  3. TRUVADA [Suspect]
     Active Substance: EMTRICITABINE\TENOFOVIR DISOPROXIL FUMARATE
     Indication: HIV infection
     Dosage: UNK
     Route: 048
     Dates: start: 2012, end: 201701
  4. ATRIPLA [Suspect]
     Active Substance: EFAVIRENZ\EMTRICITABINE\TENOFOVIR DISOPROXIL FUMARATE
     Indication: HIV infection
     Dosage: UNK
     Route: 048
     Dates: start: 2004
  5. BIKTARVY [Concomitant]
     Active Substance: BICTEGRAVIR SODIUM\EMTRICITABINE\TENOFOVIR ALAFENAMIDE FUMARATE
  6. COMBIVIR [Concomitant]
     Active Substance: LAMIVUDINE\ZIDOVUDINE
  7. CRIXIVAN [Concomitant]
     Active Substance: INDINAVIR SULFATE
  8. EPIVIR [Concomitant]
     Active Substance: LAMIVUDINE
  9. INVIRASE [Concomitant]
     Active Substance: SAQUINAVIR MESYLATE
  10. KALETRA [Concomitant]
     Active Substance: LOPINAVIR\RITONAVIR
  11. NORVIR [Concomitant]
     Active Substance: RITONAVIR
  12. REYATAZ [Concomitant]
     Active Substance: ATAZANAVIR SULFATE
  13. SUSTIVA [Concomitant]
     Active Substance: EFAVIRENZ
  14. TIVICAY [Concomitant]
     Active Substance: DOLUTEGRAVIR SODIUM
  15. TRIUMEQ [Concomitant]
     Active Substance: ABACAVIR SULFATE\DOLUTEGRAVIR SODIUM\LAMIVUDINE
  16. VIDEX [Concomitant]
     Active Substance: DIDANOSINE
  17. ZIAGEN [Concomitant]
     Active Substance: ABACAVIR SULFATE
  18. ZERIT [Concomitant]
     Active Substance: STAVUDINE
  19. ABACAVIR [Concomitant]
     Active Substance: ABACAVIR
  20. ALPRAZOLAM [Concomitant]
     Active Substance: ALPRAZOLAM
  21. BYSTOLIC [Concomitant]
     Active Substance: NEBIVOLOL HYDROCHLORIDE
  22. CEPHALEXIN [Concomitant]
     Active Substance: CEPHALEXIN
  23. CHANTIX [Concomitant]
     Active Substance: VARENICLINE TARTRATE
  24. CITALOPRAM [Concomitant]
     Active Substance: CITALOPRAM HYDROBROMIDE
  25. CYANOCOBALAMIN [Concomitant]
     Active Substance: CYANOCOBALAMIN
  26. CYCLOBENZAPRINE [Concomitant]
     Active Substance: CYCLOBENZAPRINE
  27. DIAZEPAM [Concomitant]
     Active Substance: DIAZEPAM
  28. DOXYCYCLINE [Concomitant]
     Active Substance: DOXYCYCLINE
  29. ESCITALOPRAM [Concomitant]
     Active Substance: ESCITALOPRAM OXALATE
  30. FENOFIBRATE [Concomitant]
     Active Substance: FENOFIBRATE
  31. FENOFIBRIC ACID [Concomitant]
     Active Substance: FENOFIBRIC ACID
  32. FLUZONE [Concomitant]
     Active Substance: INFLUENZA A VIRUS A/CALIFORNIA/7/2009 X-179A (H1N1) ANTIGEN (FORMALDEHYDE INACTIVATED)\INFLUENZA A V
  33. GABAPENTIN [Concomitant]
     Active Substance: GABAPENTIN
  34. ACETAMINOPHEN\HYDROCODONE [Concomitant]
     Active Substance: ACETAMINOPHEN\HYDROCODONE
  35. IBUPROFEN [Concomitant]
     Active Substance: IBUPROFEN
  36. KETOROLAC [Concomitant]
     Active Substance: KETOROLAC TROMETHAMINE
  37. LIVALO [Concomitant]
     Active Substance: PITAVASTATIN CALCIUM
  38. LOSARTAN POTASSIUM [Concomitant]
     Active Substance: LOSARTAN POTASSIUM
  39. NALTREXONE [Concomitant]
     Active Substance: NALTREXONE
  40. ONDANSETRON [Concomitant]
     Active Substance: ONDANSETRON
  41. OXYCODONE [Concomitant]
     Active Substance: OXYCODONE
  42. OXYCODONE AND ACETAMINOPHEN [Concomitant]
     Active Substance: ACETAMINOPHEN\OXYCODONE HYDROCHLORIDE
  43. PAROXETINE [Concomitant]
     Active Substance: PAROXETINE
  44. PREDNISONE [Concomitant]
     Active Substance: PREDNISONE
  45. SULFAMETHOXAZOLE [Concomitant]
     Active Substance: SULFAMETHOXAZOLE
  46. TRAZODONE [Concomitant]
     Active Substance: TRAZODONE HYDROCHLORIDE
  47. TRIZIVIR [Concomitant]
     Active Substance: ABACAVIR SULFATE\LAMIVUDINE\ZIDOVUDINE

REACTIONS (13)
  - Multiple fractures [Unknown]
  - Osteoporosis [Not Recovered/Not Resolved]
  - Stress fracture [Not Recovered/Not Resolved]
  - Bone density decreased [Unknown]
  - Pain [Unknown]
  - Emotional distress [Unknown]
  - Anxiety [Unknown]
  - Anhedonia [Unknown]
  - Osteopenia [Not Recovered/Not Resolved]
  - Bone loss [Recovered/Resolved]
  - Loose tooth [Recovered/Resolved]
  - Dysstasia [Not Recovered/Not Resolved]
  - Bone demineralisation [Not Recovered/Not Resolved]

NARRATIVE: CASE EVENT DATE: 20150101
